FAERS Safety Report 8360199-1 (Version None)
Quarter: 2012Q2

REPORT INFORMATION
  Report Type: 
  Country: None (occurrence: None)
  Receive Date: 20120515
  Receipt Date: 20120508
  Transmission Date: 20120825
  Serious: Yes (Other)
  Sender: FDA-Public Use
  Company Number: US-JNJFOC-20120509751

PATIENT
  Sex: Female

DRUGS (2)
  1. NEOSPORIN [Suspect]
     Indication: PROMOTION OF WOUND HEALING
     Route: 061
  2. NEURONTIN [Concomitant]
     Indication: NERVE INJURY
     Route: 065

REACTIONS (1)
  - RASH PUSTULAR [None]
